FAERS Safety Report 23819582 (Version 1)
Quarter: 2024Q2

REPORT INFORMATION
  Report Type: Spontaneous
  Country: US (occurrence: US)
  Receive Date: 20240506
  Receipt Date: 20240506
  Transmission Date: 20240717
  Serious: No
  Sender: FDA-Public Use
  Company Number: US-MYLANLABS-2024M1039782

PATIENT

DRUGS (1)
  1. CLONIDINE TRANSDERMAL SYSTEM [Suspect]
     Active Substance: CLONIDINE
     Indication: Product used for unknown indication
     Dosage: 0.3 MILLIGRAM, QD (24 HOUR)
     Route: 065

REACTIONS (4)
  - Blood pressure increased [Unknown]
  - Tremor [Unknown]
  - Balance disorder [Unknown]
  - Product lot number issue [Unknown]
